FAERS Safety Report 4368972-1 (Version None)
Quarter: 2004Q2

REPORT INFORMATION
  Report Type: 
  Country: None (occurrence: None)
  Receive Date: 20040525
  Receipt Date: 20040512
  Transmission Date: 20050107
  Serious: Yes (Other)
  Sender: FDA-Public Use
  Company Number: JP-JNJFOC-20040403229

PATIENT
  Age: 43 Year
  Sex: Male
  Weight: 42.9 kg

DRUGS (11)
  1. REMICADE [Suspect]
     Indication: RHEUMATOID ARTHRITIS
     Dosage: SEE IMAGE
     Route: 041
     Dates: start: 20031212, end: 20031212
  2. REMICADE [Suspect]
     Indication: RHEUMATOID ARTHRITIS
     Dosage: SEE IMAGE
     Route: 041
     Dates: start: 20040330, end: 20040330
  3. REMICADE [Suspect]
     Indication: RHEUMATOID ARTHRITIS
     Dosage: SEE IMAGE
     Route: 041
     Dates: start: 20040113, end: 20040413
  4. REMICADE [Suspect]
     Indication: RHEUMATOID ARTHRITIS
     Dosage: SEE IMAGE
     Route: 041
     Dates: start: 20031226
  5. METHOTREXATE [Concomitant]
  6. INH (ISONIAZID) UNKNOWN [Concomitant]
  7. REHEUMATREX (METHOTREXATE SODIUM) CAPSULES [Concomitant]
  8. PREDNISOLONE [Concomitant]
  9. CLINORIL (SULINDAC) TABLETS [Concomitant]
  10. FOLIAMIN (FOLIC ACID) TABLET [Concomitant]
  11. GASTER D (FAMOTIDINE) TABLETS [Concomitant]

REACTIONS (8)
  - ABSCESS [None]
  - CUSHINGOID [None]
  - FLUSHING [None]
  - MALAISE [None]
  - RASH [None]
  - SWELLING FACE [None]
  - URTICARIA [None]
  - VOMITING [None]
